FAERS Safety Report 7287817-3 (Version None)
Quarter: 2011Q1

REPORT INFORMATION
  Report Type: 
  Country: None (occurrence: None)
  Receive Date: 20110207
  Receipt Date: 20110207
  Transmission Date: 20110831
  Serious: No
  Sender: FDA-Public Use
  Company Number: None

PATIENT
  Age: 36 Year
  Sex: Female

DRUGS (4)
  1. MICRONOR [Suspect]
     Dates: start: 20050101
  2. LOESTRIN 1.5/30 [Suspect]
  3. YASMIN [Suspect]
  4. DESOGEN [Suspect]

REACTIONS (1)
  - DRUG INTOLERANCE [None]
